FAERS Safety Report 20797084 (Version 1)
Quarter: 2022Q2

REPORT INFORMATION
  Report Type: Spontaneous
  Country: US (occurrence: US)
  Receive Date: 20220506
  Receipt Date: 20220506
  Transmission Date: 20220721
  Serious: No
  Sender: FDA-Public Use
  Company Number: US-PFIZER INC-202200092370

PATIENT
  Age: 75 Year
  Sex: Female

DRUGS (2)
  1. AROMASIN [Suspect]
     Active Substance: EXEMESTANE
     Indication: Breast cancer female
     Dosage: 25 MG, 1X/DAY AT NIGHT
  2. CALTRATE + D [CALCIUM CARBONATE;COLECALCIFEROL] [Concomitant]
     Dosage: UNK

REACTIONS (5)
  - Weight increased [Unknown]
  - Insomnia [Recovered/Resolved]
  - Hyperhidrosis [Unknown]
  - Hot flush [Unknown]
  - Headache [Unknown]
